FAERS Safety Report 4319140-0 (Version None)
Quarter: 2004Q1

REPORT INFORMATION
  Report Type: 
  Country: None (occurrence: None)
  Receive Date: 20040316
  Receipt Date: 20040308
  Transmission Date: 20041129
  Serious: Yes (Hospitalization)
  Sender: FDA-Public Use
  Company Number: 2004CG00499

PATIENT
  Sex: Male

DRUGS (2)
  1. IRESSA [Suspect]
     Indication: LUNG NEOPLASM MALIGNANT
     Dosage: 250 MG DAILY PO
     Dates: start: 20031201
  2. SINTROM [Suspect]
     Indication: CARDIAC VALVE DISEASE

REACTIONS (3)
  - DRUG INTERACTION [None]
  - HAEMATOMA [None]
  - PROTHROMBIN TIME SHORTENED [None]
